FAERS Safety Report 6318220-8 (Version None)
Quarter: 2009Q3

REPORT INFORMATION
  Report Type: 
  Country: None (occurrence: None)
  Receive Date: 20090820
  Receipt Date: 20090820
  Transmission Date: 20100115
  Serious: Yes (Death)
  Sender: FDA-Public Use
  Company Number: None

PATIENT
  Sex: Male

DRUGS (9)
  1. REVLIMID [Suspect]
     Indication: MULTIPLE MYELOMA
     Dosage: 15MG DAILY ORALLY
     Route: 048
     Dates: start: 20090228, end: 20090328
  2. FENTANYL TRANSDERMAL SYSTEM [Concomitant]
  3. MORPHINE ORAL SOLUTION [Concomitant]
  4. DOCUSATE SODIUM [Concomitant]
  5. SENNA [Concomitant]
  6. BRIMONIDINE [Concomitant]
  7. DIGOXIN [Concomitant]
  8. CITALOPRAM [Concomitant]
  9. TERAZOSIN [Concomitant]

REACTIONS (1)
  - LOSS OF CONSCIOUSNESS [None]
